FAERS Safety Report 10247559 (Version 3)
Quarter: 2014Q3

REPORT INFORMATION
  Report Type: Spontaneous
  Country: NL (occurrence: None)
  Receive Date: 20140617
  Receipt Date: 20140721
  Transmission Date: 20150326
  Serious: Yes (Hospitalization)
  Sender: FDA-Public Use
  Company Number: NL-016017

PATIENT
  Age: 65 Year
  Sex: Male

DRUGS (2)
  1. FIRMAGON [Suspect]
     Active Substance: DEGARELIX ACETATE
     Indication: PROSTATE CANCER
     Dosage: (240 MG 1X SUBCUTANEOUS)?
     Route: 058
     Dates: start: 20140508, end: 20140508
  2. ANTIBIOTICS [Concomitant]
     Active Substance: UNSPECIFIED INGREDIENT

REACTIONS (3)
  - Injection site infection [None]
  - Pyrexia [None]
  - Injection site pain [None]

NARRATIVE: CASE EVENT DATE: 20140508
